FAERS Safety Report 7705714-3 (Version None)
Quarter: 2011Q3

REPORT INFORMATION
  Report Type: 
  Country: None (occurrence: None)
  Receive Date: 20110824
  Receipt Date: 20110816
  Transmission Date: 20111222
  Serious: Yes (Hospitalization, Other)
  Sender: FDA-Public Use
  Company Number: US-BAYER-201041787NA

PATIENT
  Age: 56 Year
  Sex: Male
  Weight: 114 kg

DRUGS (68)
  1. AMBIEN [Concomitant]
     Dosage: 5 MG, AT BEDTIME
     Route: 048
  2. ACETAMINOPHEN [Concomitant]
  3. RED BLOOD CELLS [Concomitant]
     Dosage: 2 U, UNK
     Route: 042
     Dates: start: 20050622
  4. MIDAZOLAM HCL [Concomitant]
     Dosage: 8.0 MG, UNK
     Route: 042
     Dates: start: 20050622
  5. PANCURONIUM [Concomitant]
     Dosage: 2.0 MG, UNK
     Route: 042
     Dates: start: 20050622
  6. ALBUMIN (HUMAN) [Concomitant]
     Dosage: 12.5 G, UNK
     Route: 042
     Dates: start: 20050622
  7. NOREPINEPHRINE BITARTRATE [Concomitant]
     Dosage: 0.05 MCG/KG/MINUTE
     Route: 042
     Dates: start: 20050622
  8. NORVASC [Concomitant]
     Dosage: 10 MG, QD
     Route: 048
  9. TRASYLOL [Suspect]
     Indication: HEART TRANSPLANT
     Dosage: 50 ML, Q1HR
     Route: 042
     Dates: start: 20050622, end: 20050622
  10. VICODIN [Concomitant]
  11. CEFUROXIME [Concomitant]
     Dosage: 1.50 MG, UNK
     Route: 042
     Dates: start: 20050622
  12. SODIUM CHLORIDE [Concomitant]
     Dosage: UNK
     Route: 042
     Dates: start: 20050622
  13. PROPOFOL [Concomitant]
     Dosage: 45 MCG/KG/MINUTE
     Route: 042
     Dates: start: 20050622
  14. NITROGLYCERIN [Concomitant]
     Dosage: 0.4 MG / PER PROTOCOL
     Route: 060
     Dates: start: 20050429
  15. ALLOPURINOL [Concomitant]
     Dosage: 300 MG, QD
     Route: 048
  16. FOLATE SODIUM [Concomitant]
  17. INSULIN [Concomitant]
     Dosage: 4 U, Q1HR
     Route: 042
     Dates: start: 20050622
  18. VASOPRESSIN [Concomitant]
     Dosage: 3 U Q1HR
     Route: 042
     Dates: start: 20050622
  19. CLINDAMYCIN [Concomitant]
     Dosage: 600 MG, UNK
     Route: 042
     Dates: start: 20050622
  20. LEVOFLOXACIN [Concomitant]
     Dosage: UNK
     Dates: end: 20050420
  21. ZOSYN [Concomitant]
  22. PYRIMETHAMINE TAB [Concomitant]
  23. AMIODARONE HCL [Concomitant]
     Dosage: 200 MG, QD
     Route: 048
     Dates: start: 20050101
  24. BACLOFEN [Concomitant]
  25. FUROSEMIDE [Concomitant]
     Dosage: 40 MG, QD
     Route: 048
  26. AMLODIPINE [Concomitant]
  27. PANCURONIUM [Concomitant]
     Dosage: 10.0 MG, UNK
     Route: 042
     Dates: start: 20050622
  28. SOLU-MEDROL [Concomitant]
     Dosage: 500 MG, UNK
     Route: 042
     Dates: start: 20050622
  29. PROTAMINE [Concomitant]
     Dosage: 400 MG, UNK
     Route: 042
     Dates: start: 20050622
  30. LINEZOLID [Concomitant]
  31. COLCHICINE [Concomitant]
     Dosage: 0.6 MG, QD
     Route: 048
  32. COLACE [Concomitant]
  33. DOXYCYCLINE [Concomitant]
     Dosage: 100 MG, BID
     Route: 048
  34. HYDRALAZINE HCL [Concomitant]
     Dosage: 60 MG, TID
     Route: 048
  35. PRAVASTATIN [Concomitant]
     Dosage: 20 MG, QD
     Route: 048
  36. SOTALOL HCL [Concomitant]
     Dosage: 40 MG, BID
     Route: 048
  37. FRESH FROZEN PLASMA [Concomitant]
     Dosage: 4 U, UNK
     Route: 042
     Dates: start: 20050622
  38. VASOPRESSIN [Concomitant]
     Dosage: 2 U, Q1HR
     Route: 042
     Dates: start: 20050622
  39. FENTANYL [Concomitant]
     Dosage: 500.0 MCG
     Route: 042
     Dates: start: 20050622
  40. FLAGYL [Concomitant]
  41. OXYCODONE HCL [Concomitant]
     Dosage: 10 MG, BID
     Route: 048
  42. LISINOPRIL [Concomitant]
     Dosage: 20 MG, BID
     Dates: start: 19960101, end: 20020101
  43. PLATELETS [Concomitant]
     Dosage: 10 UNK, UNK
     Route: 042
     Dates: start: 20050622
  44. DOPAMINE HCL [Concomitant]
     Dosage: 2 MCG/KG/MINUTE
     Route: 042
     Dates: start: 20050622
  45. ISOPROTERENOL HCL [Concomitant]
     Dosage: 2.0 MCG/KG/MINUTE
     Route: 042
     Dates: start: 20050622
  46. MILRINONE [Concomitant]
     Dosage: 0.250 MCG/KG/MINUTE
     Route: 042
     Dates: start: 20050622
  47. HEPARIN [Concomitant]
     Dosage: 3500 U, UNK
     Route: 042
     Dates: start: 20050622
  48. PROTAMINE [Concomitant]
     Dosage: 50 MG, UNK
     Route: 042
     Dates: start: 20050622
  49. CYMBALTA [Concomitant]
     Dosage: 60 MG, QD
     Route: 048
  50. DIAZEPAM [Concomitant]
     Dosage: 4 MG, TID
     Route: 048
  51. MUPIROCIN [Concomitant]
  52. NYSTATIN [Concomitant]
  53. METHADONE HYDROCHLORIDE [Concomitant]
     Dosage: 5 MG, TID
     Route: 048
  54. NORTRIPTYLINE HCL [Concomitant]
  55. INSULIN [Concomitant]
     Dosage: 2 U, UNK
     Route: 058
     Dates: start: 20050622
  56. FENTANYL [Concomitant]
     Dosage: 250.0 MCG
     Dates: start: 20050622
  57. CALCIUM CARBONATE [Concomitant]
     Dosage: 500 MG, UNK
     Route: 042
     Dates: start: 20050622
  58. CALCIUM CARBONATE [Concomitant]
     Dosage: 500 MG
     Route: 042
     Dates: start: 20050622
  59. CALCIUM CARBONATE [Concomitant]
     Dosage: 1000 MG
     Route: 042
     Dates: start: 20050622
  60. CITALOPRAM HYDROBROMIDE [Concomitant]
     Dosage: 5 MG, QD
     Route: 048
  61. TRASYLOL [Suspect]
     Dosage: 200 ML LOADING DOSE
     Route: 042
     Dates: start: 20050622
  62. ZANTAC [Concomitant]
     Dosage: 150 MG, QD
     Route: 048
  63. ACETYLSALICYLIC ACID SRT [Concomitant]
  64. CARVEDILOL [Concomitant]
     Dosage: 12.5 MG, QD
     Route: 048
  65. MAGNESIUM [Concomitant]
  66. POTASSIUM CHLORIDE [Concomitant]
     Dosage: 20 MEQ, QD
     Route: 048
  67. IRON SULFATETHIAMIN COMPOUND TAB [Concomitant]
  68. PHENYLEPHRINE HCL [Concomitant]
     Dosage: 50 MCG
     Route: 042
     Dates: start: 20050622

REACTIONS (11)
  - RENAL FAILURE [None]
  - RENAL IMPAIRMENT [None]
  - EMOTIONAL DISTRESS [None]
  - RENAL INJURY [None]
  - STRESS [None]
  - PAIN [None]
  - FEAR [None]
  - INJURY [None]
  - DEPRESSION [None]
  - UNEVALUABLE EVENT [None]
  - ANXIETY [None]
